FAERS Safety Report 5133501-1 (Version None)
Quarter: 2006Q4

REPORT INFORMATION
  Report Type: 
  Country: None (occurrence: None)
  Receive Date: 20061024
  Receipt Date: 20061018
  Transmission Date: 20070319
  Serious: Yes (Death, Hospitalization)
  Sender: FDA-Public Use
  Company Number: PHBS2006IT16210

PATIENT
  Age: 46 Year
  Sex: Female

DRUGS (2)
  1. DICLOFENAC [Suspect]
     Dosage: 2 INJECTION IN 24 HOURS
     Route: 030
  2. KETOROLAC TROMETHAMINE [Concomitant]
     Indication: ABDOMINAL PAIN LOWER
     Dosage: 1 INJECTION
     Route: 030

REACTIONS (25)
  - ACTIVATED PARTIAL THROMBOPLASTIN TIME PROLONGED [None]
  - ALANINE AMINOTRANSFERASE INCREASED [None]
  - ANURIA [None]
  - ASPARTATE AMINOTRANSFERASE INCREASED [None]
  - BLISTER [None]
  - BLOOD BICARBONATE DECREASED [None]
  - BLOOD CREATINE PHOSPHOKINASE INCREASED [None]
  - BLOOD CREATININE INCREASED [None]
  - BLOOD FIBRINOGEN INCREASED [None]
  - BLOOD LACTATE DEHYDROGENASE INCREASED [None]
  - BLOOD PH DECREASED [None]
  - BLOOD PRESSURE DECREASED [None]
  - ERYTHEMA [None]
  - ESCHERICHIA INFECTION [None]
  - HYPOPERFUSION [None]
  - MALAISE [None]
  - METABOLIC ACIDOSIS [None]
  - MULTI-ORGAN FAILURE [None]
  - NECROTISING FASCIITIS [None]
  - OEDEMA [None]
  - PERIPHERAL COLDNESS [None]
  - PLATELET COUNT DECREASED [None]
  - SURGERY [None]
  - TENDERNESS [None]
  - WHITE BLOOD CELL COUNT DECREASED [None]
